FAERS Safety Report 8045322-0 (Version None)
Quarter: 2012Q1

REPORT INFORMATION
  Report Type: 
  Country: None (occurrence: None)
  Receive Date: 20120111
  Receipt Date: 20120111
  Transmission Date: 20120608
  Serious: Yes (Life-Threatening, Hospitalization)
  Sender: FDA-Public Use
  Company Number: None

PATIENT
  Age: 73 Year
  Sex: Male
  Weight: 102.5129 kg

DRUGS (12)
  1. FENTANYL [Concomitant]
  2. CLONIDINE [Concomitant]
  3. SIMVASTATIN [Concomitant]
  4. ZOLPIDEM [Concomitant]
  5. ACETAMINOPHEN [Concomitant]
  6. VISIPAQUE 320 [Suspect]
     Indication: ILIAC ARTERY EMBOLISM
     Dosage: 100 ML ONE DOSE INTRAVENOUS BOLUS
     Route: 040
     Dates: start: 20110920, end: 20110920
  7. ADVAIR DISKUS 100/50 [Concomitant]
  8. SPIRONOLACTONE [Concomitant]
  9. BICALUTAMIDE [Concomitant]
  10. OXYBUTYNIN [Concomitant]
  11. LOSARTAN POTASSIUM [Concomitant]
  12. MIDAZOLAM [Concomitant]

REACTIONS (3)
  - ANAPHYLACTIC REACTION [None]
  - CONTRAST MEDIA REACTION [None]
  - UNRESPONSIVE TO STIMULI [None]
